FAERS Safety Report 4330647-2 (Version None)
Quarter: 2004Q2

REPORT INFORMATION
  Report Type: 
  Country: None (occurrence: None)
  Receive Date: 20040402
  Receipt Date: 20040330
  Transmission Date: 20050107
  Serious: Yes (Death, Life-Threatening, Disabling, Other)
  Sender: FDA-Public Use
  Company Number: US-GLAXOSMITHKLINE-A0505127A

PATIENT
  Age: 16 Year
  Sex: Male

DRUGS (1)
  1. ZOFRAN [Suspect]
     Indication: NAUSEA
     Dosage: 2MG SINGLE DOSE
     Route: 042
     Dates: start: 20031107, end: 20031107

REACTIONS (2)
  - DEATH [None]
  - OXYGEN SATURATION DECREASED [None]
